FAERS Safety Report 23100860 (Version 1)
Quarter: 2023Q4

REPORT INFORMATION
  Report Type: Spontaneous
  Country: US (occurrence: None)
  Receive Date: 20231021
  Receipt Date: 20231021
  Transmission Date: 20240110
  Serious: Yes (Life-Threatening, Hospitalization)
  Sender: FDA-Public Use
  Company Number: None

PATIENT
  Age: 59 Year
  Sex: Female

DRUGS (1)
  1. ETANERCEPT [Suspect]
     Active Substance: ETANERCEPT
     Dosage: FREQUENCY : ONCE;?
     Route: 058
     Dates: start: 20221231, end: 20230101

REACTIONS (6)
  - Abdominal symptom [None]
  - Fibromyalgia [None]
  - Pharyngitis [None]
  - Pneumonia [None]
  - Ocular hyperaemia [None]
  - Dry eye [None]

NARRATIVE: CASE EVENT DATE: 20230101
